FAERS Safety Report 4983012-9 (Version None)
Quarter: 2006Q2

REPORT INFORMATION
  Report Type: 
  Country: None (occurrence: None)
  Receive Date: 20060426
  Receipt Date: 20060411
  Transmission Date: 20061013
  Serious: Yes (Other)
  Sender: FDA-Public Use
  Company Number: PHRM2006FR01341

PATIENT
  Age: 69 Year
  Sex: Female

DRUGS (3)
  1. STALEVO 100 [Suspect]
     Dosage: 4 DFDAILY
     Route: 048
  2. REQUIP [Concomitant]
     Dates: start: 20050101
  3. MODAFINIL [Concomitant]

REACTIONS (3)
  - ATRIAL FIBRILLATION [None]
  - HYPOTENSION [None]
  - MITRAL VALVE INCOMPETENCE [None]
